FAERS Safety Report 7337879-X (Version None)
Quarter: 2011Q1

REPORT INFORMATION
  Report Type: 
  Country: None (occurrence: None)
  Receive Date: 20110308
  Receipt Date: 20110228
  Transmission Date: 20110831
  Serious: Yes (Hospitalization)
  Sender: FDA-Public Use
  Company Number: NL-ROCHE-762457

PATIENT
  Sex: Female

DRUGS (2)
  1. CAPECITABINE [Suspect]
     Indication: COLORECTAL CANCER
     Dosage: LAST DOSE: 24 JAN 11
     Route: 048
     Dates: start: 20101019
  2. BEVACIZUMAB [Suspect]
     Indication: COLORECTAL CANCER
     Dosage: LAST DOSE: 11 JAN 2011
     Route: 042
     Dates: start: 20101019

REACTIONS (5)
  - ENTEROCOLITIS HAEMORRHAGIC [None]
  - FIBROSIS [None]
  - COLONIC STENOSIS [None]
  - NEOPLASM [None]
  - ILEUS [None]
